FAERS Safety Report 9456224 (Version 1)
Quarter: 2013Q3

REPORT INFORMATION
  Report Type: Spontaneous
  Country: GB (occurrence: GB)
  Receive Date: 20130813
  Receipt Date: 20130813
  Transmission Date: 20140515
  Serious: Yes (Other)
  Sender: FDA-Public Use
  Company Number: GB-WATSON-2013-14095

PATIENT
  Sex: Male

DRUGS (1)
  1. DOXYCYCLINE (UNKNOWN) [Suspect]
     Indication: LOWER RESPIRATORY TRACT INFECTION
     Dosage: UNK, UNKNOWN
     Route: 065

REACTIONS (1)
  - Chromatopsia [Unknown]
